FAERS Safety Report 10870798 (Version 3)
Quarter: 2015Q1

REPORT INFORMATION
  Report Type: Spontaneous
  Country: US (occurrence: US)
  Receive Date: 20150226
  Receipt Date: 20150318
  Transmission Date: 20150721
  Serious: Yes (Hospitalization)
  Sender: FDA-Public Use
  Company Number: US-BAXTER-2015BAX010765

PATIENT
  Sex: Male
  Weight: 59.02 kg

DRUGS (1)
  1. DIANEAL LOW CALCIUM PERITONEAL DIALYSIS SOLUTION WITH DEXTROSE [Suspect]
     Active Substance: CALCIUM CHLORIDE\DEXTROSE\MAGNESIUM CHLORIDE\SODIUM CHLORIDE\SODIUM LACTATE
     Indication: CHRONIC KIDNEY DISEASE
     Route: 033

REACTIONS (9)
  - Drug dose omission [Recovered/Resolved]
  - Back pain [Unknown]
  - Abdominal pain [Unknown]
  - Flank pain [Unknown]
  - Vomiting [Unknown]
  - Hypophagia [Unknown]
  - Fall [Unknown]
  - Dehydration [Unknown]
  - Infection [Recovering/Resolving]

NARRATIVE: CASE EVENT DATE: 20150210
